FAERS Safety Report 17872919 (Version 1)
Quarter: 2020Q2

REPORT INFORMATION
  Report Type: Spontaneous
  Country: DE (occurrence: DE)
  Receive Date: 20200608
  Receipt Date: 20200608
  Transmission Date: 20200714
  Serious: Yes (Other)
  Sender: FDA-Public Use
  Company Number: NVSC2019DE091286

PATIENT
  Age: 49 Year
  Sex: Male

DRUGS (1)
  1. TAMSULOSINHYDROCHLORID HEXAL 0,4 MG RETARDTABLETTEN [Suspect]
     Active Substance: TAMSULOSIN HYDROCHLORIDE
     Indication: BENIGN NEOPLASM OF PROSTATE
     Dosage: UNK
     Route: 065

REACTIONS (1)
  - Erectile dysfunction [Unknown]
